FAERS Safety Report 13131175 (Version 1)
Quarter: 2017Q1

REPORT INFORMATION
  Report Type: Report from Study
  Country: US (occurrence: US)
  Receive Date: 20170119
  Receipt Date: 20170119
  Transmission Date: 20170428
  Serious: No
  Sender: FDA-Public Use
  Company Number: US-AMGEN-USASL2017002026

PATIENT
  Age: 64 Year
  Sex: Male

DRUGS (17)
  1. SUPER B COMPLEX WITH VITAMIN C [Concomitant]
     Dosage: UNK UNK, QD
     Route: 065
  2. FISH OIL [Concomitant]
     Active Substance: FISH OIL
     Dosage: 1000 MG, QD
     Route: 065
  3. ASPIRIN. [Concomitant]
     Active Substance: ASPIRIN
     Dosage: 81 MG, QD
     Route: 065
  4. PROBIOTIC [Concomitant]
     Active Substance: PROBIOTICS NOS
     Dosage: UNK UNK, QD
     Route: 065
  5. METHOTREXATE. [Concomitant]
     Active Substance: METHOTREXATE
     Dosage: UNK UNK, 6 PILLS ONCE A WEEK
     Route: 065
  6. RED YEAST RICE [Concomitant]
     Active Substance: DIETARY SUPPLEMENT
     Dosage: 600 MG, 2 CAPSULES A DAY
  7. CALCIUM WITH VITAMIN D3 [Concomitant]
     Active Substance: CALCIUM CARBONATE\CHOLECALCIFEROL
     Dosage: 600 MG, AS 2 CAPSULES A DAY
     Route: 065
  8. NAPROXEN. [Concomitant]
     Active Substance: NAPROXEN
     Indication: PSORIATIC ARTHROPATHY
     Dosage: 220 MG, 3 PILLS A DAY
     Route: 065
  9. ENBREL [Suspect]
     Active Substance: ETANERCEPT
     Indication: PAIN
  10. COQ10 [Concomitant]
     Active Substance: UBIDECARENONE
     Dosage: 400 MG, QD
     Route: 065
  11. GLUCOSAMINE + CHONDROITIN [Concomitant]
     Dosage: 2000 IU, AS 2 CAPSULES A DAY
     Route: 065
  12. CHOLESTOFF ORIGINAL [Concomitant]
     Dosage: UNK UNK, 2 PILLS A DAY
     Route: 065
  13. NAPROXEN. [Concomitant]
     Active Substance: NAPROXEN
     Indication: PAIN
  14. FOLIC ACID. [Concomitant]
     Active Substance: FOLIC ACID
     Dosage: UNK UNK, QD
     Route: 065
  15. OCUVITE [Concomitant]
     Active Substance: VITAMINS
     Indication: EYE DISORDER
     Dosage: UNK UNK, 1 PILL DAILY
     Route: 065
  16. ENBREL [Suspect]
     Active Substance: ETANERCEPT
     Indication: PSORIATIC ARTHROPATHY
     Dosage: 50 MG, QWK
     Route: 065
     Dates: start: 20170105
  17. TURMERIC [Concomitant]
     Active Substance: TURMERIC
     Dosage: 538 MG, QD

REACTIONS (1)
  - Injection site haemorrhage [Recovered/Resolved]

NARRATIVE: CASE EVENT DATE: 20170105
